FAERS Safety Report 8004124-1 (Version None)
Quarter: 2011Q4

REPORT INFORMATION
  Report Type: 
  Country: None (occurrence: None)
  Receive Date: 20111222
  Receipt Date: 20111214
  Transmission Date: 20120403
  Serious: Yes (Other)
  Sender: FDA-Public Use
  Company Number: US-ASTRAZENECA-2011SE75355

PATIENT
  Age: 41 Year
  Sex: Female
  Weight: 59 kg

DRUGS (9)
  1. SEROQUEL [Suspect]
     Indication: BIPOLAR DISORDER
     Route: 048
  2. TRAZIDONE [Concomitant]
  3. SPIRIVA [Concomitant]
  4. PRILOSEC [Suspect]
     Route: 048
  5. SEROQUEL [Suspect]
     Indication: DEPRESSION
     Route: 048
  6. NORVASC [Concomitant]
  7. SEROQUEL [Suspect]
     Indication: SLEEP DISORDER
     Route: 048
  8. ALBUTEROL [Concomitant]
  9. SYMBICORT [Suspect]
     Route: 055

REACTIONS (4)
  - DRUG PRESCRIBING ERROR [None]
  - SUICIDAL IDEATION [None]
  - INSOMNIA [None]
  - DRUG DOSE OMISSION [None]
